FAERS Safety Report 14247830 (Version 1)
Quarter: 2017Q4

REPORT INFORMATION
  Report Type: Report from Study
  Country: BR (occurrence: BR)
  Receive Date: 20171204
  Receipt Date: 20171204
  Transmission Date: 20180321
  Serious: Yes (Other)
  Sender: FDA-Public Use
  Company Number: PHHY2017BR159761

PATIENT
  Sex: Female
  Weight: 51 kg

DRUGS (8)
  1. ATENSINA [Concomitant]
     Active Substance: CLONIDINE
     Indication: HYPERTENSION
     Dosage: 100 MG, Q12H
     Route: 048
  2. FOLIC ACID. [Concomitant]
     Active Substance: FOLIC ACID
     Indication: RENAL FAILURE
     Dosage: 1 DF, QD (FOR 3 YEARS)
     Route: 048
  3. LOSARTAN POTASSIUM. [Concomitant]
     Active Substance: LOSARTAN POTASSIUM
     Indication: PRODUCT USED FOR UNKNOWN INDICATION
     Route: 065
  4. LOSARTAN. [Concomitant]
     Active Substance: LOSARTAN
     Indication: HYPERTENSION
     Dosage: 50 MG, QD (SINCE YESTERDAY)
     Route: 048
  5. DIOVAN AMLO FIX [Suspect]
     Active Substance: AMLODIPINE\VALSARTAN
     Indication: HYPERTENSION
     Dosage: 1 DF (AMLODIPINE 5 MG, VALSARTAN 320 MG), QD
     Route: 048
     Dates: start: 201710
  6. LONCORD [Concomitant]
     Indication: HYPERTENSION
     Dosage: 20 MG, Q12H
     Route: 048
  7. DIOVAN [Suspect]
     Active Substance: VALSARTAN
     Indication: PRODUCT USED FOR UNKNOWN INDICATION
     Dosage: UNK UNK, QD
     Route: 048
  8. OSTRIOL [Concomitant]
     Active Substance: CALCITRIOL
     Indication: RENAL FAILURE
     Dosage: 0.25 MG, QD (FOR 3 YEARS)
     Route: 048

REACTIONS (5)
  - Fluid retention [Unknown]
  - Drug ineffective [Unknown]
  - Blood pressure increased [Unknown]
  - Malaise [Unknown]
  - Blood pressure decreased [Recovering/Resolving]
